FAERS Safety Report 8785332 (Version 1)
Quarter: 2012Q4

REPORT INFORMATION
  Report Type: 
  Country: FR (occurrence: FR)
  Receive Date: 20120914
  Receipt Date: 20120914
  Transmission Date: 20130627
  Serious: Yes (Other)
  Sender: FDA-Public Use
  Company Number: FR-ASTRAZENECA-2012SE70360

PATIENT
  Sex: Female

DRUGS (2)
  1. XEROQUEL [Suspect]
     Indication: BIPOLAR DISORDER
     Route: 048
  2. AKINETON [Suspect]

REACTIONS (3)
  - Keratitis fungal [Recovered/Resolved]
  - Psychotic disorder [Unknown]
  - Drug dose omission [Unknown]
